FAERS Safety Report 8111621-7 (Version None)
Quarter: 2012Q1

REPORT INFORMATION
  Report Type: 
  Country: None (occurrence: None)
  Receive Date: 20120203
  Receipt Date: 20120130
  Transmission Date: 20120608
  Serious: Yes (Death)
  Sender: FDA-Public Use
  Company Number: US-ABBOTT-12P-163-0899094-00

PATIENT
  Sex: Male

DRUGS (2)
  1. HUMIRA [Suspect]
     Indication: ROSACEA
  2. HUMIRA [Suspect]
     Indication: PSORIASIS

REACTIONS (2)
  - ARTERIOSCLEROSIS [None]
  - OFF LABEL USE [None]
